FAERS Safety Report 6330229-7 (Version None)
Quarter: 2009Q3

REPORT INFORMATION
  Report Type: 
  Country: None (occurrence: None)
  Receive Date: 20090827
  Receipt Date: 20090506
  Transmission Date: 20100115
  Serious: No
  Sender: FDA-Public Use
  Company Number: US-KINGPHARMUSA00001-K200900552

PATIENT
  Sex: Female

DRUGS (1)
  1. FLECTOR [Suspect]
     Indication: PAIN
     Dosage: 1 PATCH, UNK
     Route: 061
     Dates: start: 20090505, end: 20090505

REACTIONS (1)
  - BLOOD BLISTER [None]
